FAERS Safety Report 9707828 (Version 3)
Quarter: 2013Q4

REPORT INFORMATION
  Report Type: Report from Study
  Country: US (occurrence: US)
  Receive Date: 20131125
  Receipt Date: 20131213
  Transmission Date: 20140711
  Serious: Yes (Disabling)
  Sender: FDA-Public Use
  Company Number: US-ROCHE-1306243

PATIENT
  Age: 92 Year
  Sex: Female

DRUGS (6)
  1. LUCENTIS [Suspect]
     Indication: AGE-RELATED MACULAR DEGENERATION
     Dosage: 3-4 SHOTS RECEIVED, LEFT EYE
     Route: 050
  2. LUCENTIS [Suspect]
     Indication: MACULAR DEGENERATION
  3. LUCENTIS [Suspect]
     Indication: EYE HAEMORRHAGE
  4. TRANDOLAPRIL [Concomitant]
  5. AMLODIPINE [Concomitant]
  6. PRAVASTATIN [Concomitant]
     Indication: BLOOD CHOLESTEROL

REACTIONS (5)
  - Blindness [Not Recovered/Not Resolved]
  - Dysgraphia [Not Recovered/Not Resolved]
  - Retinal haemorrhage [Not Recovered/Not Resolved]
  - Glare [Not Recovered/Not Resolved]
  - Visual field defect [Recovering/Resolving]
